FAERS Safety Report 14499124 (Version 1)
Quarter: 2018Q1

REPORT INFORMATION
  Report Type: Spontaneous
  Country: US (occurrence: US)
  Receive Date: 20180207
  Receipt Date: 20180207
  Transmission Date: 20180509
  Serious: No
  Sender: FDA-Public Use
  Company Number: US-JAZZ-2017-US-003000

PATIENT
  Sex: Male
  Weight: 87.98 kg

DRUGS (12)
  1. HYDROMORPHONE [Suspect]
     Active Substance: HYDROMORPHONE
     Dosage: 0.084 MG, QH
     Route: 037
     Dates: start: 20130711
  2. CLONIDINE. [Suspect]
     Active Substance: CLONIDINE
     Indication: PRODUCT USED FOR UNKNOWN INDICATION
     Dosage: 0.58 ?G, QH
     Route: 037
     Dates: start: 20130711
  3. PRIALT [Suspect]
     Active Substance: ZICONOTIDE ACETATE
     Indication: PRODUCT USED FOR UNKNOWN INDICATION
     Dosage: 0.029 ?G, QH
     Route: 037
     Dates: start: 20130711
  4. PRIALT [Suspect]
     Active Substance: ZICONOTIDE ACETATE
     Dosage: 0.019 ?G, QH
     Route: 037
     Dates: start: 20130711
  5. HYDROMORPHONE [Suspect]
     Active Substance: HYDROMORPHONE
     Indication: PRODUCT USED FOR UNKNOWN INDICATION
     Dosage: 0.125 MG, QH
     Route: 037
     Dates: start: 20130711
  6. CLONIDINE. [Suspect]
     Active Substance: CLONIDINE
     Dosage: 0.39 ?G, QH
     Route: 037
     Dates: start: 20130711
  7. HYDROMORPHONE [Suspect]
     Active Substance: HYDROMORPHONE
     Dosage: 0.33 MG, QH
     Route: 037
     Dates: start: 20141107
  8. PRIALT [Suspect]
     Active Substance: ZICONOTIDE ACETATE
     Dosage: 0.058 ?G, QH
     Route: 037
     Dates: start: 20141223
  9. HYDROMORPHONE [Suspect]
     Active Substance: HYDROMORPHONE
     Dosage: 0.29 MG, QH
     Route: 037
     Dates: start: 20141223
  10. CLONIDINE. [Suspect]
     Active Substance: CLONIDINE
     Dosage: 1.36 ?G, QH
     Route: 037
     Dates: start: 20141223
  11. PRIALT [Suspect]
     Active Substance: ZICONOTIDE ACETATE
     Dosage: 0.066 ?G, QH
     Route: 037
     Dates: start: 20141107
  12. CLONIDINE. [Suspect]
     Active Substance: CLONIDINE
     Dosage: 1.56 ?G, QH
     Route: 037
     Dates: start: 20141107

REACTIONS (4)
  - Withdrawal syndrome [Recovered/Resolved]
  - Seroma [Recovered/Resolved]
  - Flushing [Recovered/Resolved]
  - Device issue [Unknown]
